FAERS Safety Report 10185789 (Version 1)
Quarter: 2014Q2

REPORT INFORMATION
  Report Type: Spontaneous
  Country: US (occurrence: US)
  Receive Date: 20140521
  Receipt Date: 20140521
  Transmission Date: 20141212
  Serious: Yes (Other)
  Sender: FDA-Public Use
  Company Number: US-JNJFOC-20140507822

PATIENT
  Sex: Female
  Weight: 82.56 kg

DRUGS (3)
  1. TOPAMAX [Suspect]
     Indication: MIGRAINE
     Route: 048
     Dates: start: 2011
  2. PRADAXA [Concomitant]
     Indication: ATRIAL FIBRILLATION
     Route: 048
  3. CARTIA XT [Concomitant]
     Indication: PRODUCT USED FOR UNKNOWN INDICATION
     Route: 048

REACTIONS (2)
  - Visual field defect [Not Recovered/Not Resolved]
  - Optical coherence tomography abnormal [Not Recovered/Not Resolved]
